FAERS Safety Report 9526904 (Version 2)
Quarter: 2013Q3

REPORT INFORMATION
  Report Type: Spontaneous
  Country: DE (occurrence: DE)
  Receive Date: 20130916
  Receipt Date: 20130916
  Transmission Date: 20140515
  Serious: Yes (Life-Threatening, Hospitalization)
  Sender: FDA-Public Use
  Company Number: DE-ABBVIE-13P-062-1130738-00

PATIENT
  Sex: Male

DRUGS (1)
  1. HUMIRA [Suspect]
     Indication: CROHN^S DISEASE
     Route: 058
     Dates: start: 20121130, end: 20130414

REACTIONS (4)
  - Small intestinal perforation [Recovering/Resolving]
  - Renal failure [Recovering/Resolving]
  - Abdominal adhesions [Recovering/Resolving]
  - Incorrect product storage [Unknown]
